FAERS Safety Report 9230491 (Version 1)
Quarter: 2013Q2

REPORT INFORMATION
  Report Type: Report from Study
  Country: CA (occurrence: CA)
  Receive Date: 20130415
  Receipt Date: 20130415
  Transmission Date: 20140414
  Serious: Yes (Other)
  Sender: FDA-Public Use
  Company Number: CA-JNJFOC-20130200354

PATIENT
  Age: 46 Year
  Sex: Male
  Weight: 64 kg

DRUGS (6)
  1. REMICADE [Suspect]
     Indication: CROHN^S DISEASE
     Route: 042
     Dates: start: 20110919
  2. REMICADE [Suspect]
     Indication: CROHN^S DISEASE
     Dosage: 52 WEEKS
     Route: 042
     Dates: start: 20090918
  3. PENTASA [Concomitant]
     Route: 065
  4. FOLIC ACID [Concomitant]
     Route: 065
  5. IRON SUPPLEMENT [Concomitant]
     Route: 065
  6. IMODIUM [Concomitant]
     Route: 065

REACTIONS (2)
  - Nephrolithiasis [Unknown]
  - Urinary tract infection [Recovering/Resolving]
